FAERS Safety Report 15483494 (Version 2)
Quarter: 2019Q1

REPORT INFORMATION
  Report Type: Spontaneous
  Country: JP (occurrence: JP)
  Receive Date: 20181010
  Receipt Date: 20190110
  Transmission Date: 20190417
  Serious: Yes (Death, Life-Threatening, Hospitalization)
  Sender: FDA-Public Use
  Company Number: JP-ELI_LILLY_AND_COMPANY-JP201810001527

PATIENT
  Age: 79 Year
  Sex: Male
  Weight: 40 kg

DRUGS (6)
  1. DOCETAXEL. [Suspect]
     Active Substance: DOCETAXEL
     Indication: NON-SMALL CELL LUNG CANCER STAGE I
     Dosage: 86.7 MG, OTHER
     Route: 041
     Dates: start: 20161124, end: 20161124
  2. DEXART [Concomitant]
     Active Substance: DEXAMETHASONE SODIUM PHOSPHATE
     Indication: PROPHYLAXIS
     Dosage: 6.6 MG, DAILY
     Route: 041
     Dates: start: 20161124, end: 20170214
  3. DOCETAXEL. [Suspect]
     Active Substance: DOCETAXEL
     Dosage: 69.4 MG, OTHER
     Route: 041
     Dates: start: 20161220, end: 20170214
  4. POLARAMINE [Concomitant]
     Active Substance: DEXCHLORPHENIRAMINE MALEATE
     Indication: PROPHYLAXIS
     Dosage: 5 MG, DAILY
     Route: 041
     Dates: start: 20161124, end: 20170214
  5. CYRAMZA [Suspect]
     Active Substance: RAMUCIRUMAB
     Indication: NON-SMALL CELL LUNG CANCER STAGE I
     Dosage: 464 MG, OTHER
     Route: 041
     Dates: start: 20161124, end: 20161124
  6. CYRAMZA [Suspect]
     Active Substance: RAMUCIRUMAB
     Dosage: 371.2 MG, OTHER
     Dates: start: 20161220, end: 20170214

REACTIONS (4)
  - Death [Fatal]
  - Pyrexia [Unknown]
  - Febrile neutropenia [Recovered/Resolved]
  - Lung disorder [Recovered/Resolved with Sequelae]

NARRATIVE: CASE EVENT DATE: 20161201
